FAERS Safety Report 14375200 (Version 2)
Quarter: 2018Q1

REPORT INFORMATION
  Report Type: Spontaneous
  Country: US (occurrence: US)
  Receive Date: 20180111
  Receipt Date: 20180226
  Transmission Date: 20180509
  Serious: Yes (Death, Hospitalization)
  Sender: FDA-Public Use
  Company Number: US-BAYER-2017-223988

PATIENT
  Age: 81 Year
  Sex: Female

DRUGS (3)
  1. TYLENOL EXTRA STRENGTH [Suspect]
     Active Substance: ACETAMINOPHEN
     Indication: ARTHRALGIA
     Dosage: 500 MG, BID
     Route: 048
  2. XARELTO [Suspect]
     Active Substance: RIVAROXABAN
     Indication: ANAEMIA
     Dosage: 20 MG, UNK
     Route: 048
     Dates: start: 201406, end: 20141203
  3. ACETYLSALICYLIC ACID({=100 MG) [Suspect]
     Active Substance: ASPIRIN
     Indication: PRODUCT USED FOR UNKNOWN INDICATION
     Dosage: 81 MG, QD
     Route: 048
     Dates: end: 201411

REACTIONS (4)
  - Gastrointestinal haemorrhage [Recovering/Resolving]
  - Product use in unapproved indication [Unknown]
  - Meningioma [Fatal]
  - Off label use [Unknown]

NARRATIVE: CASE EVENT DATE: 201406
